FAERS Safety Report 16253320 (Version 1)
Quarter: 2019Q2

REPORT INFORMATION
  Report Type: Report from Study
  Country: None (occurrence: US)
  Receive Date: 20190429
  Receipt Date: 20190429
  Transmission Date: 20190711
  Serious: Yes (Other)
  Sender: FDA-Public Use
  Company Number: US-ABBVIE-19S-163-2758574-00

PATIENT
  Sex: Male

DRUGS (1)
  1. CREON [Suspect]
     Active Substance: PANCRELIPASE AMYLASE\PANCRELIPASE LIPASE\PANCRELIPASE PROTEASE
     Indication: PRODUCT USED FOR UNKNOWN INDICATION
     Route: 048

REACTIONS (25)
  - Liver transplant [Unknown]
  - Paraesthesia [Unknown]
  - Lumbar spinal stenosis [Unknown]
  - Coronary artery disease [Unknown]
  - Hyperlipidaemia [Unknown]
  - Carpal tunnel syndrome [Unknown]
  - Hypophosphataemia [Unknown]
  - Lumbar radiculopathy [Unknown]
  - Chronic obstructive pulmonary disease [Unknown]
  - Arthralgia [Unknown]
  - Neck pain [Unknown]
  - Arthritis [Unknown]
  - Arthrodesis [Unknown]
  - Bronchitis [Unknown]
  - Spinal fusion surgery [Unknown]
  - Chronic kidney disease [Unknown]
  - Hypertension [Unknown]
  - Cervical cord compression [Unknown]
  - Erythema [Unknown]
  - Diarrhoea [Unknown]
  - Acute kidney injury [Unknown]
  - Atrial fibrillation [Unknown]
  - Hypokalaemia [Unknown]
  - Facet joint syndrome [Unknown]
  - Spinal osteoarthritis [Unknown]
